FAERS Safety Report 22292832 (Version 5)
Quarter: 2023Q4

REPORT INFORMATION
  Report Type: Spontaneous
  Country: US (occurrence: US)
  Receive Date: 20230508
  Receipt Date: 20231229
  Transmission Date: 20240109
  Serious: Yes (Hospitalization)
  Sender: FDA-Public Use
  Company Number: US-ELI_LILLY_AND_COMPANY-US202304003339

PATIENT
  Sex: Female

DRUGS (3)
  1. ADCIRCA [Suspect]
     Active Substance: TADALAFIL
     Indication: Pulmonary arterial hypertension
     Dosage: 40 MG, DAILY
     Route: 048
     Dates: start: 202103
  2. REMODULIN [Suspect]
     Active Substance: TREPROSTINIL
     Indication: Pulmonary arterial hypertension
     Dosage: 8.93NG/KG/MIN, CONTINUOUS
     Route: 058
     Dates: start: 202303
  3. REMODULIN [Suspect]
     Active Substance: TREPROSTINIL
     Dosage: UNK UNK, OTHER (15.03 NG/KG/MIN CONTINUOUS)
     Route: 058
     Dates: start: 202304

REACTIONS (6)
  - Cardiac failure [Unknown]
  - Injection site swelling [Unknown]
  - Injection site pain [Unknown]
  - Respiratory syncytial virus infection [Unknown]
  - Pain in extremity [Unknown]
  - Product dose omission issue [Unknown]
